FAERS Safety Report 16967636 (Version 2)
Quarter: 2019Q4

REPORT INFORMATION
  Report Type: Spontaneous
  Country: CH (occurrence: CH)
  Receive Date: 20191028
  Receipt Date: 20191030
  Transmission Date: 20200122
  Serious: Yes (Life-Threatening, Hospitalization, Other)
  Sender: FDA-Public Use
  Company Number: CH-JNJFOC-20191027553

PATIENT
  Sex: Male

DRUGS (2)
  1. VALTREX [Concomitant]
     Active Substance: VALACYCLOVIR HYDROCHLORIDE
     Dosage: 2X 500
     Route: 065
  2. IMBRUVICA [Suspect]
     Active Substance: IBRUTINIB
     Indication: CHRONIC LYMPHOCYTIC LEUKAEMIA
     Dosage: DAY 1-12, STOP ON DAY 12 DUE TO ACUTE BLEEDING IN KIDNEY CYST WITHOUT TRAUMA
     Route: 048
     Dates: start: 201908, end: 2019

REACTIONS (3)
  - Acute kidney injury [Unknown]
  - Haemorrhage [Recovering/Resolving]
  - Ileus paralytic [Unknown]
